FAERS Safety Report 14382681 (Version 1)
Quarter: 2018Q1

REPORT INFORMATION
  Report Type: Spontaneous
  Country: FR (occurrence: FR)
  Receive Date: 20180112
  Receipt Date: 20180112
  Transmission Date: 20180509
  Serious: Yes (Other)
  Sender: FDA-Public Use
  Company Number: FR-009507513-1801FRA004595

PATIENT
  Age: 74 Year
  Sex: Female

DRUGS (1)
  1. SINGULAIR [Suspect]
     Active Substance: MONTELUKAST SODIUM
     Dosage: 1 DF, QD
     Route: 048

REACTIONS (7)
  - Product use issue [Unknown]
  - Head discomfort [Unknown]
  - Fatigue [Unknown]
  - Headache [Unknown]
  - Neuralgia [Unknown]
  - Thyroid operation [Unknown]
  - Balance disorder [Unknown]

NARRATIVE: CASE EVENT DATE: 20180110
